FAERS Safety Report 12448920 (Version 1)
Quarter: 2016Q2

REPORT INFORMATION
  Report Type: Spontaneous
  Country: None (occurrence: US)
  Receive Date: 20160608
  Receipt Date: 20160608
  Transmission Date: 20160815
  Serious: No
  Sender: FDA-Public Use
  Company Number: US-B. BRAUN MEDICAL INC.-1053552

PATIENT
  Age: 81 Year
  Sex: Male

DRUGS (3)
  1. NUTRILIPID I.V. FAT EMULSION [Suspect]
     Active Substance: SOYBEAN OIL
     Route: 041
     Dates: start: 20160208, end: 20160210
  2. PROSOL [Concomitant]
     Active Substance: ALANINE\ARGININE\ASPARTIC ACID\GLUTAMIC ACID\GLYCINE\HISTIDINE\ISOLEUCINE\LEUCINE\LYSINE ACETATE\METHIONINE\PHENYLALANINE\PROLINE\SERINE\THREONINE\TRYPTOPHAN\TYROSINE\VALINE
  3. GLUCOSE [Concomitant]
     Active Substance: DEXTROSE

REACTIONS (1)
  - Agitation [None]
